FAERS Safety Report 18740229 (Version 2)
Quarter: 2021Q2

REPORT INFORMATION
  Report Type: Spontaneous
  Country: CA (occurrence: CA)
  Receive Date: 20210114
  Receipt Date: 20210604
  Transmission Date: 20210717
  Serious: Yes (Other)
  Sender: FDA-Public Use
  Company Number: CA-PFIZER INC-2021021152

PATIENT
  Age: 19 Year
  Sex: Female
  Weight: 63.5 kg

DRUGS (4)
  1. ASA [Concomitant]
     Active Substance: ASPIRIN
     Dosage: 1 DF, 1X/DAY
     Route: 048
  2. METHOTREXATE SODIUM. [Suspect]
     Active Substance: METHOTREXATE SODIUM
     Dosage: 25 MG/ML SC 1 ML, WEEKLY
     Route: 058
     Dates: start: 2020
  3. ADALIMUMAB [Concomitant]
     Active Substance: ADALIMUMAB
     Dosage: 40 MG 40 MG/0.8 ML 40 MG EVERY 2 WEEKS
     Route: 058
  4. PREDNISONE. [Concomitant]
     Active Substance: PREDNISONE
     Dosage: 5 MG, 4X/DAY
     Route: 048

REACTIONS (16)
  - Lymphocyte count increased [Unknown]
  - Aneurysm [Recovering/Resolving]
  - Off label use [Unknown]
  - Asthenia [Unknown]
  - C-reactive protein increased [Unknown]
  - Exercise tolerance decreased [Unknown]
  - Carotid artery stenosis [Unknown]
  - Carotid bruit [Not Recovered/Not Resolved]
  - Angiopathy [Unknown]
  - Chest pain [Recovered/Resolved]
  - Radial pulse decreased [Unknown]
  - Product use issue [Unknown]
  - Muscular weakness [Unknown]
  - Vasculitis [Recovering/Resolving]
  - Hypotension [Unknown]
  - Subclavian steal syndrome [Recovering/Resolving]

NARRATIVE: CASE EVENT DATE: 2020
